FAERS Safety Report 10619197 (Version 3)
Quarter: 2018Q4

REPORT INFORMATION
  Report Type: Spontaneous
  Country: US (occurrence: US)
  Receive Date: 20141202
  Receipt Date: 20181016
  Transmission Date: 20190204
  Serious: Yes (Hospitalization, Other)
  Sender: FDA-Public Use
  Company Number: US-PFIZER INC-2014328439

PATIENT
  Age: 61 Year
  Sex: Female
  Weight: 86.16 kg

DRUGS (5)
  1. PREDNISONE. [Suspect]
     Active Substance: PREDNISONE
     Dosage: 5 MG, ALTERNATE DAY
  2. CELEBREX [Suspect]
     Active Substance: CELECOXIB
     Indication: FIBROMYALGIA
     Dosage: 400 MG, 2X/DAY, (TWO 200MG TABLETS BY MOUTH TWICE A D)
     Route: 048
  3. PREDNISONE. [Suspect]
     Active Substance: PREDNISONE
     Dosage: 100 MG, DAILY FOR 8 MONTHS
  4. PREDNISONE. [Suspect]
     Active Substance: PREDNISONE
     Dosage: 10 MG, ALTERNATE DAY
  5. CELEBREX [Suspect]
     Active Substance: CELECOXIB
     Indication: DERMATOMYOSITIS

REACTIONS (3)
  - Accident [Unknown]
  - Compression fracture [Unknown]
  - Sensory level abnormal [Not Recovered/Not Resolved]
